FAERS Safety Report 12298075 (Version 3)
Quarter: 2016Q3

REPORT INFORMATION
  Report Type: Spontaneous
  Country: US (occurrence: US)
  Receive Date: 20160422
  Receipt Date: 20160905
  Transmission Date: 20161109
  Serious: Yes (Hospitalization, Other)
  Sender: FDA-Public Use
  Company Number: US-ASTRAZENECA-2016SE42988

PATIENT
  Age: 66 Year
  Sex: Female
  Weight: 86.2 kg

DRUGS (9)
  1. NEXIUM 24HR [Suspect]
     Active Substance: ESOMEPRAZOLE MAGNESIUM
     Indication: GASTROOESOPHAGEAL REFLUX DISEASE
     Route: 048
     Dates: start: 201505
  2. NEXIUM 24HR [Suspect]
     Active Substance: ESOMEPRAZOLE MAGNESIUM
     Indication: BARRETT^S OESOPHAGUS
     Route: 048
     Dates: start: 201505
  3. NEXIUM 24HR [Suspect]
     Active Substance: ESOMEPRAZOLE MAGNESIUM
     Indication: BARRETT^S OESOPHAGUS
     Dosage: SHE HAD TAKEN FOUR, 3 WEEK REGIMENS OF THE ESOMEPRAZOLE MAGNESIUM ONE A DAY.
     Route: 048
  4. HYDROCODONE [Concomitant]
     Active Substance: HYDROCODONE
     Dosage: 1.0DF UNKNOWN
     Dates: start: 20160410, end: 20160410
  5. NEXIUM 24HR [Suspect]
     Active Substance: ESOMEPRAZOLE MAGNESIUM
     Indication: GASTROOESOPHAGEAL REFLUX DISEASE
     Route: 048
     Dates: start: 201505, end: 20160412
  6. RANITIDINE. [Concomitant]
     Active Substance: RANITIDINE
     Indication: NAUSEA
     Dosage: 150 MG, AS NECESSARY
  7. VOLTAREN [Concomitant]
     Active Substance: DICLOFENAC SODIUM
     Dates: start: 20160409, end: 20160410
  8. NEXIUM 24HR [Suspect]
     Active Substance: ESOMEPRAZOLE MAGNESIUM
     Indication: BARRETT^S OESOPHAGUS
     Route: 048
     Dates: start: 201505, end: 20160412
  9. NEXIUM 24HR [Suspect]
     Active Substance: ESOMEPRAZOLE MAGNESIUM
     Indication: GASTROOESOPHAGEAL REFLUX DISEASE
     Dosage: SHE HAD TAKEN FOUR, 3 WEEK REGIMENS OF THE ESOMEPRAZOLE MAGNESIUM ONE A DAY.
     Route: 048

REACTIONS (18)
  - Dyspnoea [Recovering/Resolving]
  - Myalgia [Unknown]
  - Chest pain [Recovered/Resolved]
  - Flatulence [Recovered/Resolved]
  - Emphysema [Recovered/Resolved]
  - Oropharyngeal pain [Recovered/Resolved]
  - Osteitis [Unknown]
  - Costochondritis [Unknown]
  - Neck pain [Recovered/Resolved]
  - Product use issue [Unknown]
  - Bone pain [Unknown]
  - Myositis [Unknown]
  - Dizziness [Recovered/Resolved]
  - Nausea [Unknown]
  - Product use issue [Unknown]
  - Eructation [Recovered/Resolved]
  - Off label use [Unknown]
  - Musculoskeletal pain [Recovered/Resolved]

NARRATIVE: CASE EVENT DATE: 2015
